FAERS Safety Report 4665555-0 (Version None)
Quarter: 2005Q2

REPORT INFORMATION
  Report Type: 
  Country: None (occurrence: None)
  Receive Date: 20050518
  Receipt Date: 20050518
  Transmission Date: 20051028
  Serious: Yes (Hospitalization)
  Sender: FDA-Public Use
  Company Number: None

PATIENT
  Age: 41 Year
  Sex: Male
  Weight: 103.8737 kg

DRUGS (2)
  1. CELEBREX [Suspect]
     Indication: ARTHRALGIA
     Dosage: 200 MG PO BID
     Route: 048
  2. ASPIRIN [Suspect]
     Dosage: DAILY

REACTIONS (3)
  - MASS [None]
  - PERICARDIAL DISEASE [None]
  - PULMONARY EMBOLISM [None]
